FAERS Safety Report 12226139 (Version 3)
Quarter: 2016Q2

REPORT INFORMATION
  Report Type: Report from Study
  Country: BR (occurrence: BR)
  Receive Date: 20160331
  Receipt Date: 20160427
  Transmission Date: 20160815
  Serious: Yes (Other)
  Sender: FDA-Public Use
  Company Number: PHHY2015BR118860

PATIENT
  Age: 77 Year
  Sex: Male
  Weight: 77 kg

DRUGS (2)
  1. SANDOSTATIN LAR DEPOT [Suspect]
     Active Substance: OCTREOTIDE ACETATE
     Indication: PITUITARY TUMOUR
  2. SANDOSTATIN LAR DEPOT [Suspect]
     Active Substance: OCTREOTIDE ACETATE
     Indication: ACROMEGALY
     Dosage: 30 MG, QMO (EVERY 28 DAYS)
     Route: 030
     Dates: start: 20131004

REACTIONS (11)
  - Venous occlusion [Recovered/Resolved]
  - Malaise [Unknown]
  - Angina pectoris [Unknown]
  - Prostatomegaly [Unknown]
  - Discomfort [Unknown]
  - Dengue fever [Unknown]
  - General physical health deterioration [Unknown]
  - Asthenia [Unknown]
  - Cardiomegaly [Unknown]
  - Pain [Unknown]
  - Urethral disorder [Unknown]

NARRATIVE: CASE EVENT DATE: 201601
